FAERS Safety Report 4708513-X (Version None)
Quarter: 2005Q3

REPORT INFORMATION
  Report Type: 
  Country: None (occurrence: None)
  Receive Date: 20050707
  Receipt Date: 20050302
  Transmission Date: 20060218
  Serious: Yes (Hospitalization, Disabling, Other)
  Sender: FDA-Public Use
  Company Number: US-GLAXOSMITHKLINE-A0547987A

PATIENT
  Age: 63 Year
  Sex: Female
  Weight: 78.6 kg

DRUGS (8)
  1. AVANDIA [Suspect]
     Route: 048
     Dates: start: 20020228, end: 20040701
  2. NEURONTIN [Concomitant]
     Dosage: 600MG AT NIGHT
     Route: 048
  3. SARAFEM [Concomitant]
     Dosage: 20MG PER DAY
     Route: 048
  4. NEXIUM [Concomitant]
     Dosage: 40MG PER DAY
     Route: 048
  5. COZAAR [Concomitant]
     Dosage: 100MG PER DAY
     Route: 048
  6. TENORMIN [Concomitant]
     Dosage: 25MG PER DAY
     Route: 048
  7. ZOCOR [Concomitant]
     Dosage: 20MG PER DAY
     Route: 048
  8. ASPIRIN [Concomitant]
     Dosage: 81MG PER DAY
     Route: 048

REACTIONS (4)
  - CARDIAC FAILURE [None]
  - DYSPNOEA [None]
  - OEDEMA PERIPHERAL [None]
  - PULMONARY OEDEMA [None]
